FAERS Safety Report 11308898 (Version 2)
Quarter: 2015Q3

REPORT INFORMATION
  Report Type: Spontaneous
  Country: PS (occurrence: PS)
  Receive Date: 20150724
  Receipt Date: 20150817
  Transmission Date: 20151125
  Serious: Yes (Death)
  Sender: FDA-Public Use
  Company Number: PS-SA-2015SA106646

PATIENT
  Age: 21 Year
  Sex: Male

DRUGS (4)
  1. KEPPRA [Concomitant]
     Active Substance: LEVETIRACETAM
  2. LAMICTAL [Concomitant]
     Active Substance: LAMOTRIGINE
  3. DEPAKENE [Concomitant]
     Active Substance: VALPROIC ACID
     Dosage: 250 TAB ONCE DAILY
  4. CEREZYME [Suspect]
     Active Substance: IMIGLUCERASE
     Indication: GAUCHER^S DISEASE
     Dosage: THIS PATIENT WAS TAKING 8 VIALS EVERY TWO WEEKS + 16 VIAL EVERY ?MONTH
     Route: 042
     Dates: start: 2004, end: 2015

REACTIONS (2)
  - Seizure [Fatal]
  - Malaise [Unknown]

NARRATIVE: CASE EVENT DATE: 2015
